FAERS Safety Report 15939308 (Version 5)
Quarter: 2020Q4

REPORT INFORMATION
  Report Type: Spontaneous
  Country: US (occurrence: US)
  Receive Date: 20190208
  Receipt Date: 20201120
  Transmission Date: 20210113
  Serious: Yes (Other)
  Sender: FDA-Public Use
  Company Number: US-ASTRAZENECA-2019SE10628

PATIENT
  Age: 64 Year
  Sex: Male
  Weight: 84.5 kg

DRUGS (59)
  1. SINGULAIR [Concomitant]
     Active Substance: MONTELUKAST SODIUM
     Indication: ASTHMA
     Dates: start: 2014
  2. ALIVE MENS VITAMIN [Concomitant]
     Indication: ROUTINE HEALTH MAINTENANCE
     Dates: start: 2009
  3. VITAMIN C [Concomitant]
     Active Substance: ASCORBIC ACID
     Indication: ROUTINE HEALTH MAINTENANCE
     Dates: start: 2009
  4. LIPITOR [Concomitant]
     Active Substance: ATORVASTATIN CALCIUM
  5. TRIAMCINOLONE ACETONIDE. [Concomitant]
     Active Substance: TRIAMCINOLONE ACETONIDE
  6. NULYTELY [Concomitant]
     Active Substance: POLYETHYLENE GLYCOL 3350\POTASSIUM CHLORIDE\SODIUM BICARBONATE\SODIUM CHLORIDE
  7. POTASSIUM CHLORIDE. [Concomitant]
     Active Substance: POTASSIUM CHLORIDE
  8. ALCOHOL. [Concomitant]
     Active Substance: ALCOHOL
  9. NEXIUM [Suspect]
     Active Substance: ESOMEPRAZOLE MAGNESIUM
     Indication: GASTROOESOPHAGEAL REFLUX DISEASE
     Dosage: 40.0MG UNKNOWN
     Route: 048
     Dates: start: 20120316
  10. SIMVASTATIN. [Concomitant]
     Active Substance: SIMVASTATIN
  11. LEVAQUIN [Concomitant]
     Active Substance: LEVOFLOXACIN
  12. ASTELIN [Concomitant]
     Active Substance: AZELASTINE HYDROCHLORIDE
  13. PROMETHAZINE-DM [Concomitant]
  14. QUINACRINE [Concomitant]
     Active Substance: QUINACRINE
  15. CALCIUM CITRATE [Concomitant]
     Active Substance: CALCIUM CITRATE
  16. GLUCOSAMINE SULFATE [Concomitant]
     Active Substance: GLUCOSAMINE SULFATE
  17. SYMBICORT [Concomitant]
     Active Substance: BUDESONIDE\FORMOTEROL FUMARATE DIHYDRATE
     Indication: ASTHMA
     Dates: start: 2017
  18. CRESTOR [Concomitant]
     Active Substance: ROSUVASTATIN CALCIUM
  19. DIOVAN [Concomitant]
     Active Substance: VALSARTAN
  20. CEFPROZIL. [Concomitant]
     Active Substance: CEFPROZIL
  21. CARDIZEM CD [Concomitant]
     Active Substance: DILTIAZEM HYDROCHLORIDE
  22. CEFUROXIME. [Concomitant]
     Active Substance: CEFUROXIME
  23. IPRATROPIUM-ALBUTEROL [Concomitant]
     Active Substance: ALBUTEROL\IPRATROPIUM
  24. ASPIRIN. [Concomitant]
     Active Substance: ASPIRIN
  25. LOSARTAN. [Concomitant]
     Active Substance: LOSARTAN
     Indication: BLOOD PRESSURE ABNORMAL
     Dates: start: 2019
  26. FISH OIL OMEGA 3 ACID [Concomitant]
     Indication: BLOOD CHOLESTEROL ABNORMAL
     Dates: start: 2006
  27. HYDROXYCHLOROQUINE [Concomitant]
     Active Substance: HYDROXYCHLOROQUINE
  28. IPRATROPIUM [Concomitant]
     Active Substance: IPRATROPIUM
  29. LOVAZA [Concomitant]
     Active Substance: OMEGA-3-ACID ETHYL ESTERS
  30. SELDANE [Concomitant]
     Active Substance: TERFENADINE
  31. TESTOSTERONE. [Concomitant]
     Active Substance: TESTOSTERONE
  32. NEXIUM [Suspect]
     Active Substance: ESOMEPRAZOLE MAGNESIUM
     Indication: GASTROOESOPHAGEAL REFLUX DISEASE
     Dosage: FOR MULTIPLE AND VARIOUS YEARS.
     Route: 048
     Dates: start: 2010, end: 2014
  33. PRILOSEC [Suspect]
     Active Substance: OMEPRAZOLE MAGNESIUM
     Indication: GASTROOESOPHAGEAL REFLUX DISEASE
     Dosage: FOR MULTIPLE AND VARIOUS YEARS.
     Route: 048
     Dates: start: 2010
  34. LEVOCETRIRIZINE [Concomitant]
  35. VENTOLIN HFA [Concomitant]
     Active Substance: ALBUTEROL SULFATE
  36. PHOSPHORUS [Concomitant]
     Active Substance: PHOSPHORUS
  37. OLUX [Concomitant]
     Active Substance: CLOBETASOL PROPIONATE
  38. DILTIAZEM. [Concomitant]
     Active Substance: DILTIAZEM
     Indication: BLOOD PRESSURE ABNORMAL
     Dates: start: 2000
  39. FLONASE [Concomitant]
     Active Substance: FLUTICASONE PROPIONATE
     Indication: MULTIPLE ALLERGIES
     Dates: start: 2009
  40. TYLENOL [Concomitant]
     Active Substance: ACETAMINOPHEN
     Indication: HEADACHE
     Dosage: 9-12 TIMES A YEAR
  41. CEPHALOSPORIN [Concomitant]
     Active Substance: UNSPECIFIED INGREDIENT
  42. MYCINS [Concomitant]
     Active Substance: UNSPECIFIED INGREDIENT
  43. COENZYME Q10 [Concomitant]
     Active Substance: DIETARY SUPPLEMENT\UBIDECARENONE
  44. XYZAL [Concomitant]
     Active Substance: LEVOCETIRIZINE DIHYDROCHLORIDE
     Indication: MULTIPLE ALLERGIES
     Dates: start: 2016
  45. ZETIA [Concomitant]
     Active Substance: EZETIMIBE
     Indication: BLOOD CHOLESTEROL ABNORMAL
     Dates: start: 2016
  46. AXETIL [Concomitant]
     Active Substance: CEFUROXIME AXETIL
  47. DOXYCYCLINE HYCLATE. [Concomitant]
     Active Substance: DOXYCYCLINE HYCLATE
  48. MOXIFLOXACIN. [Concomitant]
     Active Substance: MOXIFLOXACIN
  49. PRAVASTATIN. [Concomitant]
     Active Substance: PRAVASTATIN
  50. MINOCIN [Concomitant]
     Active Substance: MINOCYCLINE HYDROCHLORIDE
  51. PREVACID [Suspect]
     Active Substance: LANSOPRAZOLE
     Indication: GASTROOESOPHAGEAL REFLUX DISEASE
     Route: 065
     Dates: start: 2006, end: 2008
  52. PREVACID [Suspect]
     Active Substance: LANSOPRAZOLE
     Indication: GASTROOESOPHAGEAL REFLUX DISEASE
     Dosage: 30.0MG UNKNOWN
     Route: 048
     Dates: start: 20060926
  53. PLAVIX [Concomitant]
     Active Substance: CLOPIDOGREL BISULFATE
     Indication: CEREBROVASCULAR ACCIDENT
     Dates: start: 2016
  54. FLUTICASONE. [Concomitant]
     Active Substance: FLUTICASONE
  55. CLOBETASOL [Concomitant]
     Active Substance: CLOBETASOL
  56. STATIN [Concomitant]
     Active Substance: UNSPECIFIED INGREDIENT
  57. PENICILLIN [Concomitant]
     Active Substance: PENICILLIN
  58. MINOCYCLINE [Concomitant]
     Active Substance: MINOCYCLINE HYDROCHLORIDE
  59. CIALIS [Concomitant]
     Active Substance: TADALAFIL

REACTIONS (9)
  - Chronic kidney disease [Not Recovered/Not Resolved]
  - Renal tubular necrosis [Unknown]
  - Nephrogenic anaemia [Unknown]
  - Rebound acid hypersecretion [Unknown]
  - Renal failure [Unknown]
  - Renal injury [Unknown]
  - Chronic kidney disease-mineral and bone disorder [Unknown]
  - Tubulointerstitial nephritis [Unknown]
  - Acute kidney injury [Not Recovered/Not Resolved]

NARRATIVE: CASE EVENT DATE: 2006
